FAERS Safety Report 6219525-1 (Version None)
Quarter: 2009Q2

REPORT INFORMATION
  Report Type: 
  Country: None (occurrence: None)
  Receive Date: 20090609
  Receipt Date: 20090528
  Transmission Date: 20091009
  Serious: Yes (Hospitalization)
  Sender: FDA-Public Use
  Company Number: FR-PFIZER INC-2009219127

PATIENT
  Age: 35 Year

DRUGS (9)
  1. TRIFLUCAN [Interacting]
     Dosage: UNK
     Dates: start: 20090127, end: 20090223
  2. ERYTHROCINE [Suspect]
     Dosage: 0.25 G, 3X/DAY
     Route: 042
     Dates: start: 20090208, end: 20090213
  3. SANDIMMUNE [Interacting]
     Dosage: 90 MG, 1X/DAY
     Dates: start: 20090127, end: 20090222
  4. MYFORTIC [Concomitant]
     Dosage: UNK
     Dates: start: 20090127
  5. ZOVIRAX [Concomitant]
     Dosage: UNK
     Dates: start: 20090127
  6. BACTRIM [Concomitant]
     Dosage: UNK
     Dates: start: 20090127
  7. NEXIUM [Concomitant]
     Dosage: UNK
     Dates: start: 20090127
  8. CORTICOSTEROIDS [Concomitant]
     Dosage: 2 MG/KG, UNK
     Dates: start: 20090101
  9. CIFLOX [Concomitant]
     Indication: ANTIBIOTIC THERAPY
     Dosage: UNK
     Dates: start: 20090131, end: 20090205

REACTIONS (2)
  - DRUG INTERACTION [None]
  - DRUG LEVEL INCREASED [None]
